FAERS Safety Report 10739148 (Version 3)
Quarter: 2015Q1

REPORT INFORMATION
  Report Type: Report from Study
  Country: IL (occurrence: IL)
  Receive Date: 20150126
  Receipt Date: 20150209
  Transmission Date: 20150721
  Serious: Yes (Hospitalization)
  Sender: FDA-Public Use
  Company Number: IL-ABBVIE-15P-082-1335905-00

PATIENT
  Age: 82 Year
  Sex: Female

DRUGS (1)
  1. DUODOPA [Suspect]
     Active Substance: CARBIDOPA\LEVODOPA
     Indication: PARKINSON^S DISEASE
     Route: 050

REACTIONS (9)
  - Device occlusion [Recovered/Resolved]
  - Electrocution [Unknown]
  - Burn infection [Not Recovered/Not Resolved]
  - Thermal burn [Not Recovered/Not Resolved]
  - Device alarm issue [Unknown]
  - Cellulitis [Unknown]
  - Gangrene [Not Recovered/Not Resolved]
  - Localised infection [Unknown]
  - On and off phenomenon [Unknown]

NARRATIVE: CASE EVENT DATE: 201501
